FAERS Safety Report 4761553-7 (Version None)
Quarter: 2005Q3

REPORT INFORMATION
  Report Type: 
  Country: None (occurrence: None)
  Receive Date: 20050901
  Receipt Date: 20041122
  Transmission Date: 20060218
  Serious: Yes (Hospitalization, Other)
  Sender: FDA-Public Use
  Company Number: 15434

PATIENT
  Age: 51 Year
  Sex: Male
  Weight: 93 kg

DRUGS (5)
  1. PACLITAXEL [Suspect]
     Indication: NON-SMALL CELL LUNG CANCER
     Dosage: 17MG IV X1
     Route: 042
     Dates: start: 20041105
  2. ZOFRAN [Concomitant]
  3. DECADRON [Concomitant]
  4. PEPCID [Concomitant]
  5. BENADRYL [Concomitant]

REACTIONS (4)
  - ANAPHYLACTIC REACTION [None]
  - FLUSHING [None]
  - RESPIRATORY DISTRESS [None]
  - SWELLING [None]
